FAERS Safety Report 10221342 (Version 1)
Quarter: 2014Q2

REPORT INFORMATION
  Report Type: Spontaneous
  Country: US (occurrence: US)
  Receive Date: 20140606
  Receipt Date: 20140606
  Transmission Date: 20141212
  Serious: No
  Sender: FDA-Public Use
  Company Number: US-GLAXOSMITHKLINE-A1072816A

PATIENT
  Age: 52 Year
  Sex: Female

DRUGS (2)
  1. BREO ELLIPTA [Suspect]
     Indication: ASTHMA
     Dosage: 2PUFF PER DAY
     Route: 055
     Dates: start: 201403
  2. THYROID MEDICATION [Concomitant]

REACTIONS (1)
  - Off label use [Unknown]
